FAERS Safety Report 8358362-9 (Version None)
Quarter: 2012Q2

REPORT INFORMATION
  Report Type: 
  Country: None (occurrence: None)
  Receive Date: 20120514
  Receipt Date: 20110430
  Transmission Date: 20120825
  Serious: No
  Sender: FDA-Public Use
  Company Number: US-ALEXION-A201100639

PATIENT
  Sex: Male

DRUGS (4)
  1. ASPIRIN [Concomitant]
     Indication: PROPHYLAXIS
     Dosage: UNK PRN
  2. SOLIRIS [Suspect]
     Indication: PAROXYSMAL NOCTURNAL HAEMOGLOBINURIA
     Dosage: 900 MG Q2W
     Route: 042
  3. SOLIRIS [Suspect]
     Dosage: 900 MG, Q21 DAYS, MAINTENANCE DOSE
     Route: 042
  4. TYLENOL (CAPLET) [Concomitant]
     Indication: PROPHYLAXIS
     Dosage: UNK PRN

REACTIONS (3)
  - HEADACHE [None]
  - FATIGUE [None]
  - MALAISE [None]
